FAERS Safety Report 15830809 (Version 1)
Quarter: 2019Q1

REPORT INFORMATION
  Report Type: Spontaneous
  Country: DE (occurrence: DE)
  Receive Date: 20190116
  Receipt Date: 20190116
  Transmission Date: 20190417
  Serious: Yes (Hospitalization, Other)
  Sender: FDA-Public Use
  Company Number: DE-IPSEN BIOPHARMACEUTICALS, INC.-2019-00628

PATIENT
  Age: 78 Year
  Sex: Male
  Weight: 65 kg

DRUGS (5)
  1. ONIVYDE [Suspect]
     Active Substance: IRINOTECAN HYDROCHLORIDE
     Indication: OFF LABEL USE
  2. FLUOROURACIL. [Concomitant]
     Active Substance: FLUOROURACIL
     Indication: COLON CANCER
     Dosage: (6 MG/M2) 1 DAY CYCLE: 14 DAY; IV BOLUS
     Route: 040
     Dates: start: 20180529
  3. FLUOROURACIL. [Concomitant]
     Active Substance: FLUOROURACIL
     Dosage: 695 MG, Q2WK; IV BOLUS
     Route: 040
  4. PANITUMUMAB [Concomitant]
     Active Substance: PANITUMUMAB
     Indication: COLON CANCER
     Dosage: 390 MG, Q2WK (6 MG/M2),1 DAY CYCLE: 14 DAY;INTRAVENOUS
     Dates: start: 20180529
  5. ONIVYDE [Suspect]
     Active Substance: IRINOTECAN HYDROCHLORIDE
     Indication: COLON CANCER
     Dosage: (6 MG/M2, I DAY CYCLE: 14 DAY)
     Route: 065
     Dates: start: 20180529

REACTIONS (7)
  - Syncope [Recovered/Resolved]
  - Fibrin D dimer increased [Recovered/Resolved]
  - Alopecia [Unknown]
  - Dyspnoea [Recovered/Resolved]
  - Fatigue [Not Recovered/Not Resolved]
  - Dry skin [Not Recovered/Not Resolved]
  - Diarrhoea [Recovered/Resolved]

NARRATIVE: CASE EVENT DATE: 20180625
